FAERS Safety Report 6847498-7 (Version None)
Quarter: 2010Q3

REPORT INFORMATION
  Report Type: 
  Country: None (occurrence: None)
  Receive Date: 20100716
  Receipt Date: 20100707
  Transmission Date: 20110219
  Serious: Yes (Hospitalization)
  Sender: FDA-Public Use
  Company Number: JP-NOVOPROD-311261

PATIENT
  Age: 44 Year
  Sex: Female

DRUGS (5)
  1. GLUCAGON [Suspect]
     Indication: PRODUCT USED FOR UNKNOWN INDICATION
     Dosage: 1 MG, SINGLE
     Route: 030
  2. AMLODIPINE [Concomitant]
     Indication: HYPERTENSION
     Dosage: 5 MG, QD
     Route: 048
  3. PROHANCE [Concomitant]
     Indication: NUCLEAR MAGNETIC RESONANCE IMAGING
     Dosage: /IV
     Route: 042
     Dates: start: 20100706, end: 20100706
  4. FERROMIA                           /00023516/ [Concomitant]
     Indication: ANAEMIA
     Dosage: 5 MG, QD
     Route: 048
  5. MUCOSTA [Concomitant]
     Indication: GASTRITIS
     Dosage: 10 MG, QD
     Route: 048

REACTIONS (1)
  - SHOCK HYPOGLYCAEMIC [None]
